FAERS Safety Report 8018790-8 (Version None)
Quarter: 2012Q1

REPORT INFORMATION
  Report Type: 
  Country: None (occurrence: None)
  Receive Date: 20120103
  Receipt Date: 20111219
  Transmission Date: 20120608
  Serious: Yes (Death)
  Sender: FDA-Public Use
  Company Number: US-PFIZER INC-2011313875

PATIENT
  Age: 37 Year
  Sex: Female

DRUGS (3)
  1. FENTANYL [Suspect]
     Route: 062
  2. GABAPENTIN [Suspect]
     Route: 048
  3. ACETAMINOPHEN AND HYDROCODONE BITARTRATE [Suspect]

REACTIONS (3)
  - CARDIAC ARREST [None]
  - DEATH [None]
  - RESPIRATORY ARREST [None]
